FAERS Safety Report 5521502-0 (Version None)
Quarter: 2007Q4

REPORT INFORMATION
  Report Type: 
  Country: None (occurrence: None)
  Receive Date: 20071119
  Receipt Date: 20071109
  Transmission Date: 20080405
  Serious: Yes (Other)
  Sender: FDA-Public Use
  Company Number: FR-PFIZER INC-2007095540

PATIENT
  Age: 42 Year
  Sex: Female

DRUGS (3)
  1. CHAMPIX [Suspect]
  2. KEPPRA [Concomitant]
  3. SEGLOR [Concomitant]

REACTIONS (3)
  - DIZZINESS [None]
  - LOSS OF CONSCIOUSNESS [None]
  - MALAISE [None]
